FAERS Safety Report 4604541-3 (Version None)
Quarter: 2005Q2

REPORT INFORMATION
  Report Type: 
  Country: None (occurrence: None)
  Receive Date: 20050217
  Receipt Date: 20041020
  Transmission Date: 20051028
  Serious: No
  Sender: FDA-Public Use
  Company Number: S04-USA-06998-01

PATIENT
  Age: 88 Year
  Sex: Male

DRUGS (11)
  1. NAMENDA [Suspect]
     Indication: DEMENTIA
     Dosage: 20 MG QD PO
     Route: 048
     Dates: start: 20041015, end: 20041019
  2. NAMENDA [Suspect]
     Indication: DEMENTIA
     Dosage: 5 MG QD PO
     Route: 048
     Dates: start: 20040924, end: 20040930
  3. NAMENDA [Suspect]
     Indication: DEMENTIA
     Dosage: 10 MG QD PO
     Route: 048
     Dates: start: 20041001, end: 20041007
  4. NAMENDA [Suspect]
     Indication: DEMENTIA
     Dosage: 15 MG QD PO
     Route: 048
     Dates: start: 20041008, end: 20041014
  5. LISINOPRIL [Concomitant]
  6. PRIMIDONE [Concomitant]
  7. CHLORTHALIDONE [Concomitant]
  8. INDERAL [Concomitant]
  9. ISOSORBIDE [Concomitant]
  10. GLYBURIDE [Concomitant]
  11. NAPROXEN [Concomitant]

REACTIONS (4)
  - BALANCE DISORDER [None]
  - DIFFICULTY IN WALKING [None]
  - DIZZINESS [None]
  - DYSARTHRIA [None]
